FAERS Safety Report 17243834 (Version 2)
Quarter: 2020Q1

REPORT INFORMATION
  Report Type: Report from Study
  Country: US (occurrence: US)
  Receive Date: 20200107
  Receipt Date: 20200117
  Transmission Date: 20200409
  Serious: Yes (Hospitalization)
  Sender: FDA-Public Use
  Company Number: US-JNJFOC-20200105592

PATIENT
  Age: 21 Year
  Sex: Female
  Weight: 41.6 kg

DRUGS (12)
  1. INFLIXIMAB, RECOMBINANT [Suspect]
     Active Substance: INFLIXIMAB
     Indication: INFLAMMATORY BOWEL DISEASE
     Route: 042
     Dates: start: 20120731, end: 20130717
  2. BUDESONIDE. [Concomitant]
     Active Substance: BUDESONIDE
  3. STELARA [Concomitant]
     Active Substance: USTEKINUMAB
     Route: 058
  4. HEPARIN [Concomitant]
     Active Substance: HEPARIN SODIUM
  5. ALTEPLASE. [Concomitant]
     Active Substance: ALTEPLASE
  6. IRON DEXTRAN [Concomitant]
     Active Substance: IRON DEXTRAN
  7. CYANOCOBALAMIN. [Concomitant]
     Active Substance: CYANOCOBALAMIN
  8. SIROLIMUS. [Concomitant]
     Active Substance: SIROLIMUS
  9. PARACETAMOL [Concomitant]
     Active Substance: ACETAMINOPHEN
  10. HYDROCORTISONE. [Concomitant]
     Active Substance: HYDROCORTISONE
  11. LOPERAMIDE [Concomitant]
     Active Substance: LOPERAMIDE
  12. CHOLECALCIFEROL [Concomitant]
     Active Substance: CHOLECALCIFEROL

REACTIONS (1)
  - Crohn^s disease [Recovered/Resolved]

NARRATIVE: CASE EVENT DATE: 20191220
